FAERS Safety Report 15983223 (Version 16)
Quarter: 2020Q1

REPORT INFORMATION
  Report Type: Spontaneous
  Country: DE (occurrence: DE)
  Receive Date: 20190220
  Receipt Date: 20200311
  Transmission Date: 20200409
  Serious: Yes (Hospitalization, Other)
  Sender: FDA-Public Use
  Company Number: PHHY2019DE036107

PATIENT
  Sex: Female
  Weight: 80 kg

DRUGS (25)
  1. DERIVATIO H [Concomitant]
     Indication: ASTHMA
     Dosage: 2 DF, TID
     Route: 065
  2. AMLODIPINE [Concomitant]
     Active Substance: AMLODIPINE BESYLATE
     Indication: PRODUCT USED FOR UNKNOWN INDICATION
     Dosage: 5 MG, QD (2X DAILY MORNING)
     Route: 065
  3. VALSARTAN HEXAL COMP [Suspect]
     Active Substance: HYDROCHLOROTHIAZIDE\VALSARTAN
     Indication: PRODUCT USED FOR UNKNOWN INDICATION
     Dosage: 1 DF (160 MG, 12.5 MG), QD
     Route: 065
  4. NOVAMINSULFON-RATIOPHARM [Concomitant]
     Active Substance: METAMIZOLE
     Indication: PRODUCT USED FOR UNKNOWN INDICATION
     Dosage: 500 MG, PRN (UP TO 2 TABLETS 4TIMES PER DAY)
     Route: 065
  5. GRANUFINK FEMINA [Concomitant]
     Indication: PRODUCT USED FOR UNKNOWN INDICATION
     Dosage: UNK
     Route: 065
  6. VALSARTAN. [Suspect]
     Active Substance: VALSARTAN
     Indication: PRODUCT USED FOR UNKNOWN INDICATION
     Dosage: 80 OT, UNK
     Route: 065
     Dates: start: 20150527
  7. VALSARTAN HEXAL [Suspect]
     Active Substance: VALSARTAN
     Dosage: UNK
     Route: 065
  8. BOMINE [Concomitant]
     Indication: ASTHMA
     Dosage: 5 GTT, TID
     Route: 065
  9. VIANI [Concomitant]
     Active Substance: FLUTICASONE PROPIONATE\SALMETEROL XINAFOATE
     Indication: PRODUCT USED FOR UNKNOWN INDICATION
     Dosage: 250 MG, 2X 1 PUFF REGULARLY
     Route: 065
  10. PIRACETAM [Concomitant]
     Active Substance: PIRACETAM
     Indication: PRODUCT USED FOR UNKNOWN INDICATION
     Dosage: UNK
     Route: 065
  11. AMLODIPINE [Concomitant]
     Active Substance: AMLODIPINE BESYLATE
     Dosage: 5 MG, BID
     Route: 065
  12. PRADAXA [Concomitant]
     Active Substance: DABIGATRAN ETEXILATE MESYLATE
     Dosage: 150 UNK (ONE CAPSULE)
     Route: 065
     Dates: start: 20191026
  13. CODIOVAN [Concomitant]
     Active Substance: HYDROCHLOROTHIAZIDE\VALSARTAN
     Indication: PRODUCT USED FOR UNKNOWN INDICATION
     Dosage: 1 DF, QD (IN THE MORNING)
     Route: 065
  14. PRADAXA [Concomitant]
     Active Substance: DABIGATRAN ETEXILATE MESYLATE
     Indication: PRODUCT USED FOR UNKNOWN INDICATION
     Dosage: 150 MG, BID (APPROXIMATELY STARTED IN 2015, ONE CAPSULE MORNING AND EVENING)
     Route: 065
     Dates: end: 201910
  15. AMLODIPIN 1 A PHARMA [Concomitant]
     Active Substance: AMLODIPINE BESYLATE
     Indication: PRODUCT USED FOR UNKNOWN INDICATION
     Dosage: 5 MG, QD (MORNING) (APPROXIMATELY STARTED IN 2000)
     Route: 065
  16. ABOMIN [Concomitant]
     Indication: ASTHMA
     Dosage: 5 GTT (3 TIMES IN WATER)
     Route: 065
  17. VALSARTAN HEXAL [Suspect]
     Active Substance: VALSARTAN
     Indication: PRODUCT USED FOR UNKNOWN INDICATION
     Dosage: 1 DF, QD (160/2,5 MG)
     Route: 065
     Dates: start: 20150901, end: 20180320
  18. PANTOPRAZOL HEXAL [Concomitant]
     Active Substance: PANTOPRAZOLE
     Indication: PRODUCT USED FOR UNKNOWN INDICATION
     Dosage: 40 MG, QD
     Route: 065
  19. CANDESARTAN CILEXETIL. [Concomitant]
     Active Substance: CANDESARTAN CILEXETIL
     Indication: PRODUCT USED FOR UNKNOWN INDICATION
     Dosage: 16 MG, QD (MORNING)
     Route: 065
  20. METAMIZOLE [Concomitant]
     Active Substance: METAMIZOLE
     Indication: PRODUCT USED FOR UNKNOWN INDICATION
     Dosage: 40 GTT (4 TIMES DAILY)
     Route: 065
  21. AMLODIPINE [Concomitant]
     Active Substance: AMLODIPINE BESYLATE
     Indication: PRODUCT USED FOR UNKNOWN INDICATION
     Dosage: 5 MG, QD
     Route: 065
  22. DIPONIUM;METAMIZOLE [Concomitant]
     Indication: PRODUCT USED FOR UNKNOWN INDICATION
     Dosage: 40 GTT, QID
     Route: 065
  23. TORASEMID [Concomitant]
     Active Substance: TORSEMIDE
     Indication: PRODUCT USED FOR UNKNOWN INDICATION
     Dosage: 5 MG, QD (DAILY MORNING)
     Route: 065
  24. TORASEMIDE [Concomitant]
     Active Substance: TORSEMIDE
     Indication: PRODUCT USED FOR UNKNOWN INDICATION
     Dosage: 5 MG, QD
     Route: 065
  25. CLEXANE [Concomitant]
     Active Substance: ENOXAPARIN SODIUM
     Indication: PRODUCT USED FOR UNKNOWN INDICATION
     Dosage: 8000 IU, BID
     Route: 065
     Dates: start: 201910, end: 20191025

REACTIONS (35)
  - Urinary incontinence [Unknown]
  - Vomiting [Unknown]
  - Mitral valve incompetence [Unknown]
  - Tricuspid valve disease [Unknown]
  - Hyperuricaemia [Unknown]
  - Haemorrhoids [Unknown]
  - Hypersensitivity [Unknown]
  - Goitre [Unknown]
  - Pulmonary valve incompetence [Unknown]
  - Granuloma [Unknown]
  - Arteriosclerosis coronary artery [Unknown]
  - Hepatic steatosis [Unknown]
  - Hypocalcaemia [Unknown]
  - Rectal adenocarcinoma [Unknown]
  - Haematochezia [Unknown]
  - Follicular thyroid cancer [Unknown]
  - Right ventricular dysfunction [Unknown]
  - Rash erythematous [Not Recovered/Not Resolved]
  - Haemorrhage [Unknown]
  - Renal cyst [Unknown]
  - Proctitis [Unknown]
  - Right atrial enlargement [Unknown]
  - Aortic valve incompetence [Unknown]
  - Coronary artery disease [Unknown]
  - Diverticulum intestinal [Unknown]
  - Dyspnoea exertional [Unknown]
  - Dizziness [Unknown]
  - Intestinal haemorrhage [Recovered/Resolved]
  - Cardiomegaly [Unknown]
  - Allergic reaction to excipient [Unknown]
  - Spinal osteoarthritis [Unknown]
  - Hypertension [Unknown]
  - Skin cancer [Unknown]
  - Ventricular extrasystoles [Unknown]
  - Nausea [Unknown]

NARRATIVE: CASE EVENT DATE: 2018
